FAERS Safety Report 4636056-0 (Version None)
Quarter: 2005Q2

REPORT INFORMATION
  Report Type: 
  Country: None (occurrence: None)
  Receive Date: 20050331
  Receipt Date: 20040510
  Transmission Date: 20051028
  Serious: Yes (Hospitalization, Other)
  Sender: FDA-Public Use
  Company Number: 200412299BCC

PATIENT
  Age: 28 Year
  Sex: Female
  Weight: 68.0396 kg

DRUGS (1)
  1. ALEVE [Suspect]
     Dosage: 440 MG, ONCE, ORAL
     Route: 048
     Dates: start: 20040505

REACTIONS (5)
  - HYPERSENSITIVITY [None]
  - PRURITUS [None]
  - RESPIRATORY RATE INCREASED [None]
  - SWELLING [None]
  - URTICARIA [None]
